FAERS Safety Report 18602467 (Version 1)
Quarter: 2020Q4

REPORT INFORMATION
  Report Type: Spontaneous
  Country: US (occurrence: US)
  Receive Date: 20201210
  Receipt Date: 20201210
  Transmission Date: 20210114
  Serious: No
  Sender: FDA-Public Use
  Company Number: US-PERRIGO-20US012455

PATIENT
  Age: 8 Month
  Sex: Female
  Weight: 9.07 kg

DRUGS (1)
  1. ALBUTEROL SULFATE. [Suspect]
     Active Substance: ALBUTEROL SULFATE
     Indication: COUGH
     Dosage: 180 MCG, BID
     Route: 055
     Dates: start: 202008

REACTIONS (2)
  - Product administered to patient of inappropriate age [Not Recovered/Not Resolved]
  - Off label use [Not Recovered/Not Resolved]

NARRATIVE: CASE EVENT DATE: 202008
